FAERS Safety Report 5926590-5 (Version None)
Quarter: 2008Q4

REPORT INFORMATION
  Report Type: 
  Country: None (occurrence: None)
  Receive Date: 20081022
  Receipt Date: 20081013
  Transmission Date: 20090506
  Serious: Yes (Other)
  Sender: FDA-Public Use
  Company Number: CN-ASTRAZENECA-2008AP05332

PATIENT
  Age: 28 Year
  Sex: Female

DRUGS (2)
  1. NAROPIN [Suspect]
     Indication: NERVE BLOCK
     Dosage: 10ML DILUTED TO 40ML
     Route: 053
  2. LIDOCAINE [Suspect]
     Indication: NERVE BLOCK
     Route: 053

REACTIONS (1)
  - NERVE INJURY [None]
